FAERS Safety Report 6700674 (Version 2)
Quarter: 2015Q4

REPORT INFORMATION
  Report Type: Report from Study
  Country: AR (occurrence: AR)
  Receive Date: 20080716
  Receipt Date: 20151204
  Transmission Date: 20160305
  Serious: Yes (Hospitalization, Disabling, Other)
  Sender: FDA-Public Use
  Company Number: PHHO2008AR07714

PATIENT
  Age: 28 Year
  Sex: Male
  Weight: 79 kg

DRUGS (9)
  1. FLUDARABINE [Suspect]
     Active Substance: FLUDARABINE PHOSPHATE
     Indication: PRODUCT USED FOR UNKNOWN INDICATION
     Route: 065
  2. METHYLPREDNISOLONE. [Suspect]
     Active Substance: METHYLPREDNISOLONE
     Indication: PRODUCT USED FOR UNKNOWN INDICATION
     Route: 065
  3. AMN107 [Suspect]
     Active Substance: NILOTINIB
     Dosage: 800 MG, QD
     Route: 065
  4. IMATINIB [Suspect]
     Active Substance: IMATINIB
     Indication: CHRONIC MYELOID LEUKAEMIA
     Dosage: 400 MG, QD
     Route: 065
     Dates: start: 2003
  5. G-CSF [Suspect]
     Active Substance: GRANULOCYTE COLONY-STIMULATING FACTOR NOS
     Indication: PRODUCT USED FOR UNKNOWN INDICATION
     Route: 065
  6. ARA-C [Suspect]
     Active Substance: CYTARABINE
     Indication: PRODUCT USED FOR UNKNOWN INDICATION
     Route: 065
  7. IDARUBICIN [Suspect]
     Active Substance: IDARUBICIN
     Indication: PRODUCT USED FOR UNKNOWN INDICATION
     Route: 065
  8. AMN107 [Suspect]
     Active Substance: NILOTINIB
     Dosage: 400 MG, QD
     Route: 065
     Dates: start: 200712
  9. AMN107 [Suspect]
     Active Substance: NILOTINIB
     Indication: CHRONIC MYELOID LEUKAEMIA
     Dosage: 400 MG, QD
     Route: 048
     Dates: start: 20070526

REACTIONS (30)
  - Visual impairment [Unknown]
  - Gastrointestinal disorder [Unknown]
  - Vomiting [Unknown]
  - Thrombocytopenia [Unknown]
  - Demyelination [Unknown]
  - Drug ineffective [Unknown]
  - Cushing^s syndrome [Unknown]
  - White blood cell count decreased [Unknown]
  - Leukopenia [Unknown]
  - Hypoacusis [Unknown]
  - Headache [Unknown]
  - Neutropenia [Unknown]
  - Benign intracranial hypertension [Unknown]
  - Coma [Unknown]
  - Encephalopathy [Unknown]
  - Neurological decompensation [Unknown]
  - Gait disturbance [Unknown]
  - Blindness [Unknown]
  - Upper respiratory tract infection [Unknown]
  - Bone marrow toxicity [Unknown]
  - Nausea [Unknown]
  - Vertigo [Unknown]
  - Vision blurred [Unknown]
  - Arthralgia [Unknown]
  - Transaminases increased [Unknown]
  - Pyrexia [Unknown]
  - Platelet count decreased [Unknown]
  - Anosmia [Unknown]
  - Hepatitis toxic [Unknown]
  - Migraine [Unknown]

NARRATIVE: CASE EVENT DATE: 200710
